FAERS Safety Report 5525135-1 (Version None)
Quarter: 2007Q4

REPORT INFORMATION
  Report Type: 
  Country: None (occurrence: None)
  Receive Date: 20071119
  Receipt Date: 20071113
  Transmission Date: 20080405
  Serious: Yes (Death, Life-Threatening, Other)
  Sender: FDA-Public Use
  Company Number: TPA2007A02096

PATIENT
  Age: 67 Year
  Sex: Male
  Weight: 137.5306 kg

DRUGS (8)
  1. ACTOPLUS MET [Suspect]
     Indication: TYPE 2 DIABETES MELLITUS
     Dosage: 15/850 MG, 2 IN 1 D, PER ORAL
     Route: 048
     Dates: start: 20070615, end: 20070702
  2. INSULIN [Concomitant]
  3. NORVASC [Concomitant]
  4. PLAVIX [Concomitant]
  5. ATACAND [Concomitant]
  6. ASPIRIN [Concomitant]
  7. COLCHICUM JTL LIQ [Concomitant]
  8. ZANTAC 150 [Concomitant]

REACTIONS (3)
  - MYOCARDIAL INFARCTION [None]
  - SUDDEN CARDIAC DEATH [None]
  - TREATMENT NONCOMPLIANCE [None]
